FAERS Safety Report 17145867 (Version 1)
Quarter: 2019Q4

REPORT INFORMATION
  Report Type: Spontaneous
  Country: US (occurrence: US)
  Receive Date: 20191120
  Receipt Date: 20191120
  Transmission Date: 20200122
  Serious: No
  Sender: FDA-Public Use
  Company Number: None

PATIENT
  Age: 78 Year
  Sex: Female

DRUGS (2)
  1. IBRANCE [Suspect]
     Active Substance: PALBOCICLIB
     Indication: OROPHARYNGEAL PAIN
     Route: 048
     Dates: start: 20190420
  2. IBRANCE [Suspect]
     Active Substance: PALBOCICLIB
     Indication: COUGH
     Route: 048
     Dates: start: 20190420

REACTIONS (2)
  - Cough [None]
  - Oropharyngeal pain [None]

NARRATIVE: CASE EVENT DATE: 20191105
